FAERS Safety Report 7891924-1 (Version None)
Quarter: 2011Q4

REPORT INFORMATION
  Report Type: 
  Country: None (occurrence: None)
  Receive Date: 20111103
  Receipt Date: 20110811
  Transmission Date: 20120403
  Serious: No
  Sender: FDA-Public Use
  Company Number: US-AMGEN-USASP2011041019

PATIENT
  Age: 64 Year
  Sex: Female

DRUGS (3)
  1. ENBREL [Suspect]
     Indication: RHEUMATOID ARTHRITIS
     Dosage: 50 MG, QWK
     Dates: start: 20080901
  2. PLAQUENIL [Concomitant]
     Dosage: 1 MG, QD
     Dates: start: 19971001
  3. TREXALL [Concomitant]
     Dosage: 1 MG, QWK
     Dates: start: 20000101

REACTIONS (6)
  - INFLUENZA [None]
  - ABDOMINAL PAIN UPPER [None]
  - ARTHRALGIA [None]
  - HAEMORRHOIDAL HAEMORRHAGE [None]
  - DIARRHOEA [None]
  - GASTRIC DILATATION [None]
